FAERS Safety Report 20962964 (Version 1)
Quarter: 2022Q2

REPORT INFORMATION
  Report Type: Spontaneous
  Country: JP (occurrence: JP)
  Receive Date: 20220615
  Receipt Date: 20220615
  Transmission Date: 20220721
  Serious: Yes (Other)
  Sender: FDA-Public Use
  Company Number: JP-NAPPMUNDI-GBR-2022-0098852

PATIENT
  Age: 72 Year
  Sex: Female

DRUGS (2)
  1. THEOPHYLLINE [Suspect]
     Active Substance: THEOPHYLLINE
     Indication: Change in seizure presentation
     Dosage: 200 MILLIGRAM, NOCTE
     Route: 048
  2. THIOPENTAL SODIUM [Suspect]
     Active Substance: THIOPENTAL SODIUM
     Indication: Anaesthesia
     Dosage: 2.18 MG/KG, UNK
     Route: 065

REACTIONS (2)
  - Delirium [Unknown]
  - Off label use [Unknown]
